FAERS Safety Report 5868898-8 (Version None)
Quarter: 2008Q3

REPORT INFORMATION
  Report Type: 
  Country: None (occurrence: None)
  Receive Date: 20080902
  Receipt Date: 20080902
  Transmission Date: 20090109
  Serious: Yes (Hospitalization)
  Sender: FDA-Public Use
  Company Number: None

PATIENT
  Age: 39 Year
  Sex: Male
  Weight: 74.8435 kg

DRUGS (2)
  1. OSMOPREP [Suspect]
     Indication: COLONOSCOPY
     Dosage: SEE DIRECTIONS ROUTINE PO
     Route: 048
     Dates: start: 20080723, end: 20080723
  2. OSMOPREP [Suspect]
     Indication: PREOPERATIVE CARE
     Dosage: SEE DIRECTIONS ROUTINE PO
     Route: 048
     Dates: start: 20080723, end: 20080723

REACTIONS (6)
  - BLOOD ELECTROLYTES DECREASED [None]
  - CHILLS [None]
  - CONVULSION [None]
  - DIZZINESS [None]
  - FEELING ABNORMAL [None]
  - TREMOR [None]
